FAERS Safety Report 7046523-0 (Version None)
Quarter: 2010Q4

REPORT INFORMATION
  Report Type: 
  Country: None (occurrence: None)
  Receive Date: 20101014
  Receipt Date: 20100930
  Transmission Date: 20110411
  Serious: Yes (Other)
  Sender: FDA-Public Use
  Company Number: CA-GENENTECH-307760

PATIENT
  Sex: Male

DRUGS (3)
  1. OMALIZUMAB [Suspect]
     Indication: ASTHMA
     Dosage: 300 MG, 2/MONTH
     Route: 058
     Dates: start: 20061113
  2. OMALIZUMAB [Suspect]
     Dosage: 300 MG, 2/MONTH
     Dates: start: 20091008
  3. OMALIZUMAB [Suspect]
     Dosage: 300 MG, 2/MONTH
     Dates: start: 20091105

REACTIONS (4)
  - BRONCHOPNEUMONIA [None]
  - EAR INFECTION [None]
  - FATIGUE [None]
  - INFECTION [None]
